FAERS Safety Report 11990759 (Version 1)
Quarter: 2016Q1

REPORT INFORMATION
  Report Type: Spontaneous
  Country: US (occurrence: US)
  Receive Date: 20160202
  Receipt Date: 20160202
  Transmission Date: 20160526
  Serious: No
  Sender: FDA-Public Use
  Company Number: US-GALDERMA-US15002249

PATIENT
  Age: 15 Year
  Sex: Male

DRUGS (2)
  1. SULFA 84 TOPICAL SUSPENSION (SODIUM SULFACETAMIDE) [Concomitant]
     Indication: THERAPEUTIC SKIN CARE TOPICAL
     Route: 061
  2. EPIDUO [Suspect]
     Active Substance: ADAPALENE\BENZOYL PEROXIDE
     Indication: ACNE
     Route: 061
     Dates: start: 2014

REACTIONS (2)
  - Hair colour changes [Not Recovered/Not Resolved]
  - Skin hypopigmentation [Not Recovered/Not Resolved]

NARRATIVE: CASE EVENT DATE: 2015
